FAERS Safety Report 7769660-1 (Version None)
Quarter: 2011Q3

REPORT INFORMATION
  Report Type: 
  Country: None (occurrence: None)
  Receive Date: 20110922
  Receipt Date: 20101210
  Transmission Date: 20111222
  Serious: No
  Sender: FDA-Public Use
  Company Number: US-ASTRAZENECA-2010SE58971

PATIENT
  Sex: Male

DRUGS (13)
  1. SEROQUEL [Suspect]
     Indication: INSOMNIA
     Route: 048
     Dates: start: 20090101
  2. MELATONIN [Concomitant]
  3. PERCOSET [Concomitant]
     Indication: PAIN
  4. SEROQUEL [Suspect]
     Dosage: ONE 200 MG TABLET AND TOOK 1/2 TABLET THEN ANOTHER 1/2 TABLET
     Route: 048
     Dates: start: 20101209
  5. SEROQUEL [Suspect]
     Route: 048
     Dates: start: 20101001, end: 20101201
  6. XANAX [Concomitant]
  7. SEROQUEL [Suspect]
     Route: 048
     Dates: start: 20090101
  8. SEROQUEL [Suspect]
     Route: 048
     Dates: start: 20101001, end: 20101201
  9. BENADRYL [Concomitant]
  10. PRILOSEC [Concomitant]
     Route: 048
  11. SEROQUEL [Suspect]
     Dosage: ONE 200 MG TABLET AND TOOK 1/2 TABLET THEN ANOTHER 1/2 TABLET
     Route: 048
     Dates: start: 20101209
  12. ZANAFLEX [Concomitant]
  13. CALCATE [Concomitant]
     Indication: ULCER

REACTIONS (4)
  - INCORRECT DOSE ADMINISTERED [None]
  - INSOMNIA [None]
  - DRUG INEFFECTIVE FOR UNAPPROVED INDICATION [None]
  - DRUG DOSE OMISSION [None]
